FAERS Safety Report 8133104-0 (Version None)
Quarter: 2012Q1

REPORT INFORMATION
  Report Type: 
  Country: None (occurrence: None)
  Receive Date: 20120213
  Receipt Date: 20120207
  Transmission Date: 20120608
  Serious: Yes (Other)
  Sender: FDA-Public Use
  Company Number: PHEH2012US002557

PATIENT
  Sex: Female
  Weight: 77.098 kg

DRUGS (10)
  1. CALCIUM [Concomitant]
  2. PRAVACHOL [Concomitant]
  3. THYROID THERAPY [Concomitant]
  4. NORVASC [Concomitant]
  5. OMEPRAZOLE [Concomitant]
  6. LISINOPRIL [Concomitant]
  7. BACLOFEN [Concomitant]
     Dosage: 10 MG, BID
  8. VALIUM [Concomitant]
  9. GILENYA [Suspect]
     Indication: RELAPSING-REMITTING MULTIPLE SCLEROSIS
     Dosage: 0.5 MG, QD
     Route: 048
     Dates: start: 20110401, end: 20120104
  10. HYDROCHLOROTHIAZIDE [Concomitant]

REACTIONS (15)
  - PARAESTHESIA [None]
  - HYPOAESTHESIA [None]
  - MUSCLE SPASMS [None]
  - MUSCULOSKELETAL STIFFNESS [None]
  - REFLEXES ABNORMAL [None]
  - CEREBELLAR SYNDROME [None]
  - AMNESIA [None]
  - ATAXIA [None]
  - PERSONALITY CHANGE [None]
  - BALANCE DISORDER [None]
  - MULTIPLE SCLEROSIS RELAPSE [None]
  - CONFUSIONAL STATE [None]
  - GAIT DISTURBANCE [None]
  - SOMNOLENCE [None]
  - ARTHRALGIA [None]
